FAERS Safety Report 7199740-3 (Version None)
Quarter: 2010Q4

REPORT INFORMATION
  Report Type: 
  Country: None (occurrence: None)
  Receive Date: 20101228
  Receipt Date: 20101213
  Transmission Date: 20110411
  Serious: Yes (Life-Threatening, Hospitalization)
  Sender: FDA-Public Use
  Company Number: DE-ROCHE-730124

PATIENT
  Sex: Female
  Weight: 50 kg

DRUGS (11)
  1. HERCEPTIN [Suspect]
     Route: 042
     Dates: start: 20100906, end: 20100906
  2. GEMCITABINE [Concomitant]
     Dates: start: 20100501
  3. MORPHINE [Concomitant]
     Indication: PAIN
     Route: 048
  4. METAMIZOL [Concomitant]
     Indication: PAIN
     Route: 048
  5. AMLODIPINE [Concomitant]
     Indication: HYPERTENSION
     Route: 048
  6. CANDESARTAN [Concomitant]
     Indication: HYPERTENSION
     Route: 048
  7. METOCLOPRAMID [Concomitant]
     Indication: NAUSEA
     Route: 048
  8. LORAZEPAM [Concomitant]
     Route: 048
  9. PANTOZOL [Concomitant]
     Indication: PROPHYLAXIS
     Route: 048
  10. VINORELBINE [Concomitant]
     Dates: start: 20090601, end: 20100301
  11. BISPHOSPHONATE [Concomitant]
     Indication: METASTASES TO BONE
     Dates: start: 20080601

REACTIONS (6)
  - ACUTE RESPIRATORY DISTRESS SYNDROME [None]
  - ANAEMIA [None]
  - ANAPHYLACTIC REACTION [None]
  - CARDIAC FAILURE [None]
  - HYPOGLOSSAL NERVE PARESIS [None]
  - HYPOKALAEMIA [None]
